FAERS Safety Report 5378755-1 (Version None)
Quarter: 2007Q3

REPORT INFORMATION
  Report Type: 
  Country: None (occurrence: None)
  Receive Date: 20070705
  Receipt Date: 20070625
  Transmission Date: 20080115
  Serious: Yes (Other)
  Sender: FDA-Public Use
  Company Number: B0477618A

PATIENT
  Age: 83 Year
  Sex: Male
  Weight: 71 kg

DRUGS (1)
  1. ARIXTRA [Suspect]
     Indication: MITRAL VALVE REPLACEMENT
     Route: 058
     Dates: start: 20070612, end: 20070612

REACTIONS (7)
  - ANAEMIA [None]
  - HYPOTENSION [None]
  - INTENTIONAL DRUG MISUSE [None]
  - INTESTINAL HAEMORRHAGE [None]
  - ISCHAEMIC STROKE [None]
  - MONOPLEGIA [None]
  - POST PROCEDURAL HAEMATOMA [None]
